FAERS Safety Report 6439808-X (Version None)
Quarter: 2009Q4

REPORT INFORMATION
  Report Type: 
  Country: None (occurrence: None)
  Receive Date: 20091112
  Receipt Date: 20091112
  Transmission Date: 20100525
  Serious: Yes (Hospitalization)
  Sender: FDA-Public Use
  Company Number: None

PATIENT
  Sex: Female
  Weight: 65.318 kg

DRUGS (3)
  1. YAZ [Suspect]
     Indication: ACNE
     Dates: start: 20090801, end: 20090818
  2. YAZ [Suspect]
     Indication: CONTRACEPTION
     Dates: start: 20090801, end: 20090818
  3. YAZ [Suspect]
     Indication: DYSMENORRHOEA
     Dates: start: 20090801, end: 20090818

REACTIONS (7)
  - ANGER [None]
  - ANXIETY [None]
  - CEREBROVASCULAR ACCIDENT [None]
  - HEADACHE [None]
  - HEART RATE INCREASED [None]
  - HYPERTENSION [None]
  - PARANOIA [None]
